FAERS Safety Report 8979334 (Version 2)
Quarter: 2013Q2

REPORT INFORMATION
  Report Type: Report from Study
  Country: US (occurrence: US)
  Receive Date: 20121221
  Receipt Date: 20130430
  Transmission Date: 20140414
  Serious: Yes (Death, Hospitalization)
  Sender: FDA-Public Use
  Company Number: US-PFIZER INC-2012315419

PATIENT
  Age: 59 Year
  Sex: Female
  Weight: 43 kg

DRUGS (10)
  1. CRIZOTINIB [Suspect]
     Indication: NON-SMALL CELL LUNG CANCER
     Dosage: 200 MG, 2X/DAY
     Route: 048
     Dates: start: 20121031, end: 20121211
  2. DACOMITINIB [Suspect]
     Indication: NON-SMALL CELL LUNG CANCER
     Dosage: 30 MG, ONCE DAILY
     Route: 048
     Dates: start: 20121031, end: 20121211
  3. AMLODIPINE [Concomitant]
     Indication: HYPERTENSION
     Dosage: 5 MG, DAILY
     Route: 048
     Dates: start: 20121121
  4. SPIRIVA [Concomitant]
     Indication: CHRONIC OBSTRUCTIVE PULMONARY DISEASE
     Dosage: 18 UG, DAILY; FORMULATION: INHALER; ROUTE: INHALER
     Route: 055
     Dates: start: 201110
  5. ADVAIR [Concomitant]
     Indication: CHRONIC OBSTRUCTIVE PULMONARY DISEASE
     Dosage: 500 MCG/ 50 MCG TWICE DAILY; FORMULATION: POWDER; ROUTE: INHALER
     Route: 055
     Dates: start: 201110
  6. DORZOLAMIDE HYDROCHLORIDE [Concomitant]
     Indication: GLAUCOMA
     Dosage: DORZOLAMIDE HCL 2%-10 ML, 1X/DAY, ROUTE: DROPS
     Dates: start: 1992
  7. ENOXAPARIN [Concomitant]
     Indication: PROPHYLAXIS
     Dosage: 40 MG, DAILY
     Route: 058
     Dates: start: 20121023, end: 20121119
  8. LORAZEPAM [Concomitant]
     Indication: ANXIETY
     Dosage: 5 MG, Q6HR PRN
     Route: 048
     Dates: start: 20121030
  9. CELEXA [Concomitant]
     Indication: ANXIETY
     Dosage: UNK
     Route: 048
     Dates: start: 20121204
  10. CELEXA [Concomitant]
     Indication: DEPRESSION

REACTIONS (2)
  - Pleural effusion [Fatal]
  - Pneumonia [Fatal]
